FAERS Safety Report 21261196 (Version 2)
Quarter: 2022Q3

REPORT INFORMATION
  Report Type: Spontaneous
  Country: US (occurrence: US)
  Receive Date: 20220826
  Receipt Date: 20220826
  Transmission Date: 20221026
  Serious: No
  Sender: FDA-Public Use
  Company Number: US-Dermavant-000085

PATIENT
  Age: 35 Year
  Sex: Male

DRUGS (2)
  1. VTAMA [Suspect]
     Active Substance: TAPINAROF
  2. OTEZLA [Concomitant]
     Active Substance: APREMILAST

REACTIONS (1)
  - Folliculitis [Recovered/Resolved]
